FAERS Safety Report 8621743-X (Version None)
Quarter: 2012Q3

REPORT INFORMATION
  Report Type: 
  Country: None (occurrence: None)
  Receive Date: 20120821
  Receipt Date: 20120821
  Transmission Date: 20120928
  Serious: Yes (Life-Threatening, Hospitalization)
  Sender: FDA-Public Use
  Company Number: None

PATIENT
  Age: 71 Year
  Sex: Male

DRUGS (2)
  1. PIPERACILLIN AND TAZOBACTAM [Suspect]
     Indication: URINARY TRACT INFECTION
     Dates: start: 20120713, end: 20120719
  2. PIPERACILLIN AND TAZOBACTAM [Suspect]
     Indication: SEPSIS
     Dates: start: 20120713, end: 20120719

REACTIONS (1)
  - THROMBOCYTOPENIA [None]
